FAERS Safety Report 7127962-6 (Version None)
Quarter: 2010Q4

REPORT INFORMATION
  Report Type: 
  Country: None (occurrence: None)
  Receive Date: 20101130
  Receipt Date: 20101116
  Transmission Date: 20110411
  Serious: Yes (Hospitalization)
  Sender: FDA-Public Use
  Company Number: US-EISAI INC.-E7389-01060-CLI-US

PATIENT
  Sex: Male

DRUGS (12)
  1. E7389 (BOLD) [Suspect]
     Indication: NON-SMALL CELL LUNG CANCER
     Route: 041
     Dates: start: 20101111
  2. FERREX [Concomitant]
     Route: 048
     Dates: start: 20100415
  3. OXYCODONE HCL [Concomitant]
     Route: 048
  4. MIRALAX [Concomitant]
     Route: 048
     Dates: start: 20100916
  5. MELATONIN [Concomitant]
     Route: 048
     Dates: start: 20100916
  6. MEGACE [Concomitant]
     Route: 048
     Dates: start: 20101012
  7. COLACE [Concomitant]
     Route: 048
     Dates: start: 20100427
  8. M.V.I. [Concomitant]
     Route: 065
  9. ZOMETA [Concomitant]
     Route: 065
  10. FUROSEMIDE [Concomitant]
     Route: 065
  11. PROCHLORPERAZINE [Concomitant]
     Route: 065
  12. TARCEVA [Concomitant]
     Route: 048

REACTIONS (2)
  - NEUTROPENIA [None]
  - SEPSIS [None]
